FAERS Safety Report 5338500-2 (Version None)
Quarter: 2007Q2

REPORT INFORMATION
  Report Type: 
  Country: None (occurrence: None)
  Receive Date: 20070405
  Receipt Date: 20061106
  Transmission Date: 20071010
  Serious: No
  Sender: FDA-Public Use
  Company Number: US200611001199

PATIENT
  Age: 61 Year
  Sex: Female

DRUGS (8)
  1. CYMBALTA [Suspect]
     Indication: PAIN
     Dosage: 30 MG, DAILY (1/D)
     Dates: start: 20060101
  2. CYMBALTA [Suspect]
     Indication: PAIN
     Dosage: 30 MG, DAILY (1/D)
     Dates: start: 20060101
  3. CYMBALTA [Suspect]
  4. SYNTHROID [Concomitant]
  5. DIOVAN [Concomitant]
  6. NORVASC [Concomitant]
  7. INFLUENZA VACCINE (INFLUENZA VACCINE) [Concomitant]
  8. PNEUMUNE (PNEUMOCOCCAL VACCINE) [Concomitant]

REACTIONS (4)
  - ABDOMINAL PAIN UPPER [None]
  - BLOOD PRESSURE INCREASED [None]
  - NAUSEA [None]
  - PAIN [None]
